FAERS Safety Report 9562688 (Version 1)
Quarter: 2013Q3

REPORT INFORMATION
  Report Type: Spontaneous
  Country: US (occurrence: US)
  Receive Date: 20130927
  Receipt Date: 20130927
  Transmission Date: 20140515
  Serious: No
  Sender: FDA-Public Use
  Company Number: US-PFIZER INC-2013277937

PATIENT
  Age: 39 Year
  Sex: Female

DRUGS (3)
  1. EFFEXOR XR [Suspect]
     Dosage: 225 MG, UNK
  2. EFFEXOR [Suspect]
     Dosage: UNK
  3. XANAX XR [Concomitant]
     Dosage: UNK

REACTIONS (2)
  - Menorrhagia [Unknown]
  - Contusion [Unknown]
